FAERS Safety Report 8579782 (Version 6)
Quarter: 2012Q4

REPORT INFORMATION
  Report Type: Report from Study
  Country: BE (occurrence: BE)
  Receive Date: 20120525
  Receipt Date: 20121004
  Transmission Date: 20130627
  Serious: Yes (Hospitalization)
  Sender: FDA-Public Use
  Company Number: BE-JNJFOC-20120516528

PATIENT
  Age: 15 Year
  Sex: Male
  Weight: 65 kg

DRUGS (9)
  1. GOLIMUMAB [Suspect]
     Indication: JUVENILE ARTHRITIS
     Route: 058
     Dates: start: 20120516
  2. GOLIMUMAB [Suspect]
     Indication: JUVENILE ARTHRITIS
     Route: 058
     Dates: start: 20120802
  3. GOLIMUMAB [Suspect]
     Indication: JUVENILE ARTHRITIS
     Route: 058
     Dates: start: 20120418
  4. GOLIMUMAB [Suspect]
     Indication: JUVENILE ARTHRITIS
     Route: 058
     Dates: start: 20120613
  5. GOLIMUMAB [Suspect]
     Indication: JUVENILE ARTHRITIS
     Route: 058
     Dates: start: 20120711
  6. GOLIMUMAB [Suspect]
     Indication: JUVENILE ARTHRITIS
     Route: 058
     Dates: start: 20120320
  7. NAPROXEN [Concomitant]
     Indication: ARTHRALGIA
     Route: 048
     Dates: start: 20120418, end: 20120509
  8. NAPROXEN [Concomitant]
     Indication: ARTHRALGIA
     Route: 048
     Dates: start: 20110801, end: 20120418
  9. FOLIC ACID [Concomitant]
     Indication: PROPHYLAXIS
     Route: 048
     Dates: start: 20110331

REACTIONS (1)
  - Juvenile idiopathic arthritis [Recovered/Resolved]
